FAERS Safety Report 24297720 (Version 4)
Quarter: 2024Q4

REPORT INFORMATION
  Report Type: Spontaneous
  Country: US (occurrence: US)
  Receive Date: 20240909
  Receipt Date: 20241031
  Transmission Date: 20250115
  Serious: No
  Sender: PFIZER
  Company Number: US-PFIZER INC-202400245933

PATIENT
  Age: 64 Year
  Sex: Female
  Weight: 64.86 kg

DRUGS (2)
  1. ESTRING [Suspect]
     Active Substance: ESTRADIOL
     Indication: Menopausal symptoms
     Dosage: 7.5MCG PER DAY. IT^S A 2MG RING. INSERT RING VAGINALLY EVERY 90 DAYS
     Route: 067
  2. GABAPENTIN [Concomitant]
     Active Substance: GABAPENTIN
     Indication: Neuropathy peripheral
     Dosage: 300MG CAPSULES TWICE A DAY BY MOUTH
     Route: 048

REACTIONS (2)
  - Device difficult to use [Unknown]
  - Device physical property issue [Unknown]

NARRATIVE: CASE EVENT DATE: 20240821
